FAERS Safety Report 17245523 (Version 1)
Quarter: 2020Q1

REPORT INFORMATION
  Report Type: Report from Study
  Country: CA (occurrence: CA)
  Receive Date: 20200108
  Receipt Date: 20200108
  Transmission Date: 20200409
  Serious: Yes (Other)
  Sender: FDA-Public Use
  Company Number: CA-TEVA-2020-CA-1164703

PATIENT
  Age: 37 Year
  Sex: Female

DRUGS (9)
  1. CYCLEN [Concomitant]
     Active Substance: ETHINYL ESTRADIOL\NORGESTIMATE
  2. SYMBICORT [Concomitant]
     Active Substance: BUDESONIDE\FORMOTEROL FUMARATE DIHYDRATE
  3. VITAMIN D [Concomitant]
     Active Substance: VITAMIN D NOS
  4. VENTOLIN [Concomitant]
     Active Substance: ALBUTEROL SULFATE
  5. ATIVAN [Concomitant]
     Active Substance: LORAZEPAM
  6. PREGABALIN. [Concomitant]
     Active Substance: PREGABALIN
  7. COPAXONE [Suspect]
     Active Substance: GLATIRAMER ACETATE
     Indication: MULTIPLE SCLEROSIS
     Route: 065
     Dates: start: 20180129
  8. OMEGA 3 COMPLEX [Concomitant]
  9. FOLIC ACID. [Concomitant]
     Active Substance: FOLIC ACID

REACTIONS (4)
  - Swelling [Unknown]
  - Pruritus [Unknown]
  - Anaphylactic reaction [Unknown]
  - Erythema [Unknown]

NARRATIVE: CASE EVENT DATE: 201912
